FAERS Safety Report 16225920 (Version 2)
Quarter: 2020Q3

REPORT INFORMATION
  Report Type: Spontaneous
  Country: HR (occurrence: HR)
  Receive Date: 20190423
  Receipt Date: 20200511
  Transmission Date: 20201104
  Serious: Yes (Hospitalization)
  Sender: FDA-Public Use
  Company Number: HR-SUN PHARMACEUTICAL INDUSTRIES LTD-2019R1-205810

PATIENT
  Age: 50 Year
  Sex: Male

DRUGS (9)
  1. CLAVULANIC ACID [Concomitant]
     Active Substance: CLAVULANIC ACID
     Indication: ACUTE SINUSITIS
     Dosage: UNK
     Route: 065
  2. EPHEDRINE. [Suspect]
     Active Substance: EPHEDRINE
     Indication: NASAL CONGESTION
  3. ROSUVASTATIN. [Concomitant]
     Active Substance: ROSUVASTATIN
     Indication: PRODUCT USED FOR UNKNOWN INDICATION
     Dosage: 10 MG
     Route: 065
  4. AMOXICILLIN. [Concomitant]
     Active Substance: AMOXICILLIN
     Indication: NASAL CONGESTION
  5. AMOXICILLIN. [Concomitant]
     Active Substance: AMOXICILLIN
     Indication: ACUTE SINUSITIS
     Dosage: UNK
     Route: 065
  6. LORATADINE AND PSEUDOEPHEDRINE SULFATE [Suspect]
     Active Substance: LORATADINE\PSEUDOEPHEDRINE SULFATE
     Indication: NASAL CONGESTION
  7. EPHEDRINE. [Suspect]
     Active Substance: EPHEDRINE
     Indication: ACUTE SINUSITIS
     Dosage: UNK, DAILY (4?5 TIMES)
     Route: 045
  8. LORATADINE AND PSEUDOEPHEDRINE SULFATE [Suspect]
     Active Substance: LORATADINE\PSEUDOEPHEDRINE SULFATE
     Indication: ACUTE SINUSITIS
     Dosage: UNK UNK, BID (5/120 MG)
     Route: 048
  9. CLAVULANIC ACID [Concomitant]
     Active Substance: CLAVULANIC ACID
     Indication: NASAL CONGESTION

REACTIONS (1)
  - Hypertension [Unknown]
